FAERS Safety Report 9480923 (Version 1)
Quarter: 2013Q3

REPORT INFORMATION
  Report Type: Spontaneous
  Country: US (occurrence: US)
  Receive Date: 20130828
  Receipt Date: 20130828
  Transmission Date: 20140515
  Serious: Yes (Hospitalization)
  Sender: FDA-Public Use
  Company Number: US-AMGEN-KDL139169

PATIENT
  Age: 56 Year
  Sex: Female

DRUGS (6)
  1. ENBREL [Suspect]
     Indication: RHEUMATOID ARTHRITIS
     Dosage: 25 MG, 2 TIMES/WK
     Route: 058
     Dates: start: 200401, end: 20050616
  2. CLOPIDOGREL BISULFATE [Concomitant]
     Dosage: UNK UNK, UNK
  3. SULTOPRIDE [Concomitant]
     Dosage: UNK UNK, UNK
  4. ISOSORBIDE MONONITRATE [Concomitant]
     Dosage: UNK UNK, UNK
  5. FENOFIBRATE [Concomitant]
     Dosage: UNK UNK, UNK
  6. ESTRADIOL [Concomitant]
     Dosage: UNK UNK, UNK

REACTIONS (2)
  - Arterial occlusive disease [Recovered/Resolved]
  - Chest pain [Unknown]
